FAERS Safety Report 9893673 (Version 2)
Quarter: 2014Q1

REPORT INFORMATION
  Report Type: Report from Study
  Country: CA (occurrence: CA)
  Receive Date: 20140213
  Receipt Date: 20140318
  Transmission Date: 20141002
  Serious: Yes (Hospitalization)
  Sender: FDA-Public Use
  Company Number: CA-TEVA-462399USA

PATIENT
  Age: 72 Year
  Sex: Male

DRUGS (1)
  1. BENDAMUSTINE [Suspect]
     Indication: NON-HODGKIN^S LYMPHOMA
     Route: 042
     Dates: start: 20131001

REACTIONS (1)
  - Left ventricular dysfunction [Recovered/Resolved with Sequelae]
